FAERS Safety Report 5601154-1 (Version None)
Quarter: 2008Q1

REPORT INFORMATION
  Report Type: 
  Country: None (occurrence: None)
  Receive Date: 20080122
  Receipt Date: 20080122
  Transmission Date: 20080703
  Serious: Yes (Other)
  Sender: FDA-Public Use
  Company Number: None

PATIENT
  Age: 8 Year
  Sex: Female
  Weight: 19.9583 kg

DRUGS (2)
  1. VYVANSE [Suspect]
     Indication: ATTENTION DEFICIT/HYPERACTIVITY DISORDER
     Dosage: 30 1 PO
     Route: 048
     Dates: start: 20060204, end: 20080121
  2. BETA BLOCKER [Concomitant]

REACTIONS (5)
  - ANOREXIA [None]
  - FLAT AFFECT [None]
  - INSOMNIA [None]
  - PALPITATIONS [None]
  - WEIGHT DECREASED [None]
